FAERS Safety Report 7558504-9 (Version None)
Quarter: 2011Q2

REPORT INFORMATION
  Report Type: 
  Country: None (occurrence: None)
  Receive Date: 20110620
  Receipt Date: 20110610
  Transmission Date: 20111010
  Serious: Yes (Hospitalization)
  Sender: FDA-Public Use
  Company Number: US-RB-024933-11

PATIENT
  Age: 22 Year
  Sex: Female

DRUGS (1)
  1. SUBOXONE [Suspect]
     Indication: PRODUCT USED FOR UNKNOWN INDICATION
     Dosage: SUBLINGUAL FILM; DOSING INFORMATION UNKNOWN
     Route: 065

REACTIONS (8)
  - DEPRESSED MOOD [None]
  - OEDEMA PERIPHERAL [None]
  - VOMITING [None]
  - OFF LABEL USE [None]
  - THYROID DISORDER [None]
  - ASTHENIA [None]
  - CONSTIPATION [None]
  - ANXIETY [None]
